FAERS Safety Report 23886450 (Version 1)
Quarter: 2024Q2

REPORT INFORMATION
  Report Type: Spontaneous
  Country: AT (occurrence: AT)
  Receive Date: 20240522
  Receipt Date: 20240522
  Transmission Date: 20240716
  Serious: Yes (Other)
  Sender: FDA-Public Use
  Company Number: AT-002147023-NVSC2020AT192393

PATIENT
  Sex: Female

DRUGS (2)
  1. METHOTREXATE SODIUM [Suspect]
     Active Substance: METHOTREXATE SODIUM
     Indication: Rheumatic disorder
     Dosage: UNK
     Route: 065
  2. METHOTREXATE SODIUM [Suspect]
     Active Substance: METHOTREXATE SODIUM
     Indication: Rheumatic disorder
     Dosage: MTX-RATIOPHARM 10 MGUNK
     Route: 065

REACTIONS (5)
  - Rheumatoid arthritis [Unknown]
  - Disease recurrence [Unknown]
  - Rheumatic disorder [Unknown]
  - Product packaging issue [Unknown]
  - Device issue [Unknown]
